FAERS Safety Report 4777498-2 (Version None)
Quarter: 2005Q3

REPORT INFORMATION
  Report Type: 
  Country: None (occurrence: None)
  Receive Date: 20050921
  Receipt Date: 20050909
  Transmission Date: 20060218
  Serious: Yes (Hospitalization)
  Sender: FDA-Public Use
  Company Number: GBR-2005-0001879

PATIENT
  Age: 34 Year
  Sex: Female

DRUGS (4)
  1. DIHYDROCODEINE BITARTRATE INJ [Suspect]
  2. CLOZARIL [Suspect]
     Dosage: ORAL
     Route: 048
     Dates: start: 20050509
  3. HYOSCINE HBR HYT [Concomitant]
  4. TOPIRAMATE [Concomitant]

REACTIONS (3)
  - HEART RATE INCREASED [None]
  - MULTIPLE DRUG OVERDOSE [None]
  - SEDATION [None]
